FAERS Safety Report 22395224 (Version 1)
Quarter: 2023Q2

REPORT INFORMATION
  Report Type: Spontaneous
  Country: ZA (occurrence: ZA)
  Receive Date: 20230601
  Receipt Date: 20230601
  Transmission Date: 20230722
  Serious: Yes (Other)
  Sender: FDA-Public Use
  Company Number: ZA-PFIZER INC-PV202300095482

PATIENT
  Age: 67 Year
  Sex: Female
  Weight: 57 kg

DRUGS (4)
  1. METHOTREXATE SODIUM [Suspect]
     Active Substance: METHOTREXATE SODIUM
     Dosage: 25 MG, WEEKLY
     Dates: start: 20120202
  2. SULFASALAZINE [Suspect]
     Active Substance: SULFASALAZINE
     Dosage: 200 MG, DAILY
     Dates: start: 20161208
  3. CHLOROQUINE [Suspect]
     Active Substance: CHLOROQUINE
     Dosage: 200 MG, DAILY
     Dates: start: 20120509
  4. ARAVA [Suspect]
     Active Substance: LEFLUNOMIDE
     Dosage: 20 MG, DAILY
     Dates: start: 20181016

REACTIONS (8)
  - Aortic stenosis [Unknown]
  - Knee arthroplasty [Unknown]
  - Shoulder arthroplasty [Unknown]
  - Drug ineffective [Unknown]
  - Depression [Unknown]
  - Osteoporosis [Unknown]
  - Platelet count increased [Unknown]
  - Aspartate aminotransferase increased [Unknown]

NARRATIVE: CASE EVENT DATE: 20170101
